FAERS Safety Report 19271327 (Version 6)
Quarter: 2021Q4

REPORT INFORMATION
  Report Type: Report from Study
  Country: CA (occurrence: CA)
  Receive Date: 20210518
  Receipt Date: 20211027
  Transmission Date: 20220303
  Serious: Yes (Hospitalization, Other)
  Sender: FDA-Public Use
  Company Number: CA-AKCEA THERAPEUTICS, INC.-2021IS001000

PATIENT
  Age: 61 Year
  Sex: Female
  Weight: 35.09 kg

DRUGS (11)
  1. TEGSEDI [Suspect]
     Active Substance: INOTERSEN SODIUM
     Indication: Hereditary neuropathic amyloidosis
     Route: 058
     Dates: start: 20200403
  2. DEVICE [Suspect]
     Active Substance: DEVICE
  3. CLARITIN [Concomitant]
     Active Substance: LORATADINE
     Route: 048
  4. ASCORBIC ACID W/VITAMIN D NOS [Concomitant]
     Route: 048
  5. VAGISIL PV [Concomitant]
     Route: 061
  6. MIDODRINE [Concomitant]
     Active Substance: MIDODRINE
     Route: 048
     Dates: start: 2020
  7. VENIXXA [Concomitant]
     Route: 065
  8. RETINOL [Concomitant]
     Active Substance: RETINOL
     Route: 065
  9. LASIX [Concomitant]
     Active Substance: FUROSEMIDE
     Route: 065
  10. FOSFOMYCIN [Concomitant]
     Active Substance: FOSFOMYCIN
     Route: 048
     Dates: start: 2012
  11. BENZOCAINE [Concomitant]
     Active Substance: BENZOCAINE
     Route: 065

REACTIONS (24)
  - Genital swelling [Not Recovered/Not Resolved]
  - Peripheral swelling [Not Recovered/Not Resolved]
  - Vision blurred [Not Recovered/Not Resolved]
  - Injection site urticaria [Not Recovered/Not Resolved]
  - Blood pressure decreased [Recovered/Resolved]
  - Arthritis [Unknown]
  - Malaise [Unknown]
  - Diarrhoea [Unknown]
  - Dark circles under eyes [Unknown]
  - Periorbital swelling [Unknown]
  - Dysphonia [Unknown]
  - Dizziness [Unknown]
  - Irritable bowel syndrome [Unknown]
  - Hypophagia [Unknown]
  - Heart rate increased [Unknown]
  - Presyncope [Unknown]
  - Pollakiuria [Unknown]
  - Urinary tract infection [Recovered/Resolved]
  - Swelling [Not Recovered/Not Resolved]
  - Blood pressure increased [Not Recovered/Not Resolved]
  - Abdominal distension [Not Recovered/Not Resolved]
  - Cardiac disorder [Not Recovered/Not Resolved]
  - Oedema peripheral [Not Recovered/Not Resolved]
  - Injection site pain [Not Recovered/Not Resolved]

NARRATIVE: CASE EVENT DATE: 20210201
